FAERS Safety Report 7918107 (Version 3)
Quarter: 2013Q2

REPORT INFORMATION
  Report Type: Spontaneous
  Country: US (occurrence: US)
  Receive Date: 20110428
  Receipt Date: 20130506
  Transmission Date: 20140414
  Serious: No
  Sender: FDA-Public Use
  Company Number: US-ASTRAZENECA-2010SE28303

PATIENT
  Age: 57 Year
  Sex: Female

DRUGS (1)
  1. ZOMIG [Suspect]
     Indication: MIGRAINE
     Dosage: 5 MG SPRAY QD PRN
     Route: 045

REACTIONS (3)
  - Pain [Unknown]
  - Headache [Unknown]
  - Intentional drug misuse [Unknown]
